FAERS Safety Report 22030110 (Version 1)
Quarter: 2023Q1

REPORT INFORMATION
  Report Type: Spontaneous
  Country: US (occurrence: None)
  Receive Date: 20230222
  Receipt Date: 20230222
  Transmission Date: 20230417
  Serious: Yes (Hospitalization)
  Sender: FDA-Public Use
  Company Number: None

PATIENT
  Age: 44 Year
  Sex: Female
  Weight: 100 kg

DRUGS (1)
  1. LIDOCAINE [Suspect]
     Active Substance: LIDOCAINE
     Indication: Analgesic therapy
     Dates: start: 20230213, end: 20230213

REACTIONS (4)
  - Angioedema [None]
  - Burning sensation [None]
  - Flushing [None]
  - Flushing [None]

NARRATIVE: CASE EVENT DATE: 20230213
